FAERS Safety Report 19630827 (Version 1)
Quarter: 2021Q3

REPORT INFORMATION
  Report Type: Spontaneous
  Country: IT (occurrence: IT)
  Receive Date: 20210729
  Receipt Date: 20210729
  Transmission Date: 20211014
  Serious: Yes (Hospitalization)
  Sender: FDA-Public Use
  Company Number: IT-MYLANLABS-2021M1046751

PATIENT
  Sex: Female

DRUGS (3)
  1. PROSTAGLANDIN E1 [Concomitant]
     Active Substance: ALPROSTADIL
     Dosage: DOSAGE REDUCED
  2. IBUPROFEN. [Suspect]
     Active Substance: IBUPROFEN
     Indication: PATENT DUCTUS ARTERIOSUS
     Dosage: UNK
     Route: 065
  3. PROSTAGLANDIN E1 [Concomitant]
     Active Substance: ALPROSTADIL
     Indication: PRODUCT USED FOR UNKNOWN INDICATION
     Dosage: HIGH DOSAGE

REACTIONS (2)
  - Drug ineffective for unapproved indication [Unknown]
  - Off label use [Unknown]
